FAERS Safety Report 8052873 (Version 4)
Quarter: 2012Q4

REPORT INFORMATION
  Report Type: 
  Country: FR (occurrence: FR)
  Receive Date: 20110725
  Receipt Date: 20121126
  Transmission Date: 20130627
  Serious: Yes (Hospitalization, Disabling)
  Sender: FDA-Public Use
  Company Number: FR-GLAXOSMITHKLINE-B0733598A

PATIENT
  Sex: Female

DRUGS (12)
  1. BUSULFAN [Suspect]
     Indication: BONE MARROW TRANSPLANT
     Dosage: 70MG Four times per day
     Route: 048
     Dates: start: 20120219, end: 20120222
  2. ARACYTINE [Suspect]
     Indication: ACUTE MYELOID LEUKAEMIA
     Dates: start: 19990828
  3. IDARUBICINE [Concomitant]
     Indication: ACUTE MYELOID LEUKAEMIA
     Dosage: 8MGM2 per day
     Route: 065
     Dates: start: 19990828
  4. AUTOLOGOUS STEM CELL INFUSION [Concomitant]
     Indication: ACUTE MYELOID LEUKAEMIA
     Dates: start: 200002
  5. ENDOXAN [Concomitant]
     Indication: BONE MARROW TRANSPLANT
     Dosage: 200MGM2 See dosage text
     Route: 065
     Dates: start: 2010, end: 2010
  6. MITOXANTRONE [Concomitant]
     Indication: ACUTE MYELOID LEUKAEMIA
     Dosage: 12MGM2 per day
     Route: 065
     Dates: start: 19990913
  7. AMSACRINE [Concomitant]
     Indication: ACUTE MYELOID LEUKAEMIA
     Route: 065
     Dates: start: 1999
  8. VP16 [Concomitant]
     Indication: ACUTE MYELOID LEUKAEMIA
     Route: 065
     Dates: start: 1999
  9. MELPHALAN [Concomitant]
     Dosage: 250MG Single dose
     Route: 042
     Dates: start: 20000223
  10. RIVOTRIL [Concomitant]
     Dosage: 1MG per day
     Dates: start: 20000218
  11. LASILIX [Concomitant]
     Dosage: 20MG Single dose
     Dates: start: 20000223
  12. NACL [Concomitant]
     Indication: POLYURIA
     Dosage: 1L Single dose
     Dates: start: 200002, end: 200002

REACTIONS (20)
  - Myelitis transverse [Recovering/Resolving]
  - Paraplegia [Recovering/Resolving]
  - Gait disturbance [Recovering/Resolving]
  - Fall [Recovering/Resolving]
  - Motor dysfunction [Recovering/Resolving]
  - Sensory disturbance [Recovering/Resolving]
  - Hyperreflexia [Recovering/Resolving]
  - Extensor plantar response [Recovering/Resolving]
  - Muscle disorder [Not Recovered/Not Resolved]
  - Paraparesis [Recovering/Resolving]
  - Muscle spasticity [Recovering/Resolving]
  - Paraesthesia [Recovering/Resolving]
  - Paraesthesia [Recovering/Resolving]
  - Dysaesthesia [Recovering/Resolving]
  - Extrapyramidal disorder [Recovering/Resolving]
  - Spinal disorder [Recovering/Resolving]
  - Loss of proprioception [Recovering/Resolving]
  - Neurological symptom [Recovering/Resolving]
  - Alopecia [Not Recovered/Not Resolved]
  - Premature menopause [Not Recovered/Not Resolved]
